FAERS Safety Report 7261040-0 (Version None)
Quarter: 2011Q1

REPORT INFORMATION
  Report Type: 
  Country: None (occurrence: None)
  Receive Date: 20110130
  Receipt Date: 20101104
  Transmission Date: 20110831
  Serious: No
  Sender: FDA-Public Use
  Company Number: US-ABBOTT-10P-163-0687584-00

PATIENT
  Sex: Male
  Weight: 99.88 kg

DRUGS (2)
  1. CELEXA [Concomitant]
     Indication: DEPRESSION
  2. HUMIRA [Suspect]
     Indication: PSORIASIS
     Dates: start: 20101013

REACTIONS (5)
  - PAIN [None]
  - INCREASED APPETITE [None]
  - HEADACHE [None]
  - MUSCULOSKELETAL PAIN [None]
  - PSORIASIS [None]
